FAERS Safety Report 12894596 (Version 2)
Quarter: 2016Q4

REPORT INFORMATION
  Report Type: Spontaneous
  Country: US (occurrence: US)
  Receive Date: 20161028
  Receipt Date: 20161221
  Transmission Date: 20170207
  Serious: Yes (Other)
  Sender: FDA-Public Use
  Company Number: US-ENDO PHARMACEUTICALS INC.-2016-006483

PATIENT
  Sex: Female

DRUGS (1)
  1. FROVA [Suspect]
     Active Substance: FROVATRIPTAN SUCCINATE
     Indication: MIGRAINE
     Route: 048
     Dates: start: 20161021, end: 20161021

REACTIONS (5)
  - Nausea [Recovering/Resolving]
  - Paraesthesia [Recovering/Resolving]
  - Drug ineffective [Unknown]
  - Headache [Recovering/Resolving]
  - Blood pressure increased [Recovering/Resolving]

NARRATIVE: CASE EVENT DATE: 20161021
